FAERS Safety Report 15352177 (Version 4)
Quarter: 2019Q3

REPORT INFORMATION
  Report Type: Report from Study
  Country: US (occurrence: US)
  Receive Date: 20180905
  Receipt Date: 20190802
  Transmission Date: 20191004
  Serious: Yes (Other)
  Sender: FDA-Public Use
  Company Number: US-SA-2018SA242866

PATIENT
  Age: 47 Year
  Sex: Female

DRUGS (2)
  1. TERIFLUNOMIDE. [Suspect]
     Active Substance: TERIFLUNOMIDE
     Indication: MULTIPLE SCLEROSIS
     Dosage: 14 MG, QD
     Route: 048
     Dates: start: 20180628
  2. TERIFLUNOMIDE. [Suspect]
     Active Substance: TERIFLUNOMIDE
     Dosage: 14 MG, QD
     Route: 048
     Dates: start: 20180704, end: 201901

REACTIONS (10)
  - Fall [Unknown]
  - Headache [Recovered/Resolved]
  - Nephrolithiasis [Not Recovered/Not Resolved]
  - Vertigo [Not Recovered/Not Resolved]
  - Alopecia [Recovered/Resolved]
  - Nausea [Recovered/Resolved]
  - Multiple sclerosis relapse [Not Recovered/Not Resolved]
  - Pain in extremity [Not Recovered/Not Resolved]
  - Weight decreased [Recovered/Resolved]
  - Decreased appetite [Recovered/Resolved]

NARRATIVE: CASE EVENT DATE: 201808
